FAERS Safety Report 4986266-8 (Version None)
Quarter: 2006Q2

REPORT INFORMATION
  Report Type: 
  Country: None (occurrence: None)
  Receive Date: 20060428
  Receipt Date: 20060105
  Transmission Date: 20061013
  Serious: Yes (Hospitalization)
  Sender: FDA-Public Use
  Company Number: US-MERCK-0601USA00558

PATIENT
  Age: 31 Year
  Sex: Male

DRUGS (1)
  1. VIOXX [Suspect]
     Route: 048
     Dates: start: 20020101, end: 20031203

REACTIONS (5)
  - ANTIPHOSPHOLIPID ANTIBODIES POSITIVE [None]
  - ATRIAL SEPTAL DEFECT [None]
  - CEREBROVASCULAR ACCIDENT [None]
  - HYPERCOAGULATION [None]
  - SYNCOPE [None]
